FAERS Safety Report 14616432 (Version 1)
Quarter: 2018Q1

REPORT INFORMATION
  Report Type: Spontaneous
  Country: US (occurrence: US)
  Receive Date: 20180309
  Receipt Date: 20180309
  Transmission Date: 20180509
  Serious: Yes (Other)
  Sender: FDA-Public Use
  Company Number: US-ROCHE-2084506

PATIENT

DRUGS (4)
  1. AVASTIN [Suspect]
     Active Substance: BEVACIZUMAB
     Indication: LUNG NEOPLASM MALIGNANT
     Route: 065
     Dates: start: 20170620, end: 20170912
  2. AVASTIN [Suspect]
     Active Substance: BEVACIZUMAB
     Indication: BONE CANCER
  3. AVASTIN [Suspect]
     Active Substance: BEVACIZUMAB
     Indication: LUNG NEOPLASM MALIGNANT
  4. AVASTIN [Suspect]
     Active Substance: BEVACIZUMAB
     Indication: METASTASES TO SKIN

REACTIONS (1)
  - Pancytopenia [Unknown]
